FAERS Safety Report 12263370 (Version 1)
Quarter: 2016Q2

REPORT INFORMATION
  Report Type: Spontaneous
  Country: FR (occurrence: FR)
  Receive Date: 20160413
  Receipt Date: 20160413
  Transmission Date: 20160815
  Serious: Yes (Other)
  Sender: FDA-Public Use
  Company Number: FR-PFIZER INC-2016207923

PATIENT
  Age: 70 Year
  Sex: Female

DRUGS (12)
  1. TENORMIN [Concomitant]
     Active Substance: ATENOLOL
     Indication: HYPERTENSION
     Dosage: 200 MG, DAILY
     Route: 048
     Dates: start: 200904
  2. IXPRIM [Concomitant]
     Active Substance: ACETAMINOPHEN\TRAMADOL HYDROCHLORIDE
     Indication: PAIN
     Dosage: 2 TO 6 TABLETS, DAILY
     Route: 048
     Dates: start: 201208
  3. AFINITOR [Suspect]
     Active Substance: EVEROLIMUS
     Indication: BREAST CANCER METASTATIC
     Dosage: UNK
     Dates: start: 201312, end: 201402
  4. PREVISCAN /00789001/ [Concomitant]
     Active Substance: FLUINDIONE
     Indication: ANTICOAGULANT THERAPY
     Dosage: 10 MG, DAILY
     Route: 048
     Dates: start: 201001
  5. FLECAINE [Concomitant]
     Active Substance: FLECAINIDE
     Indication: ATRIAL FIBRILLATION
  6. ALDACTAZINE [Concomitant]
     Active Substance: ALTHIAZIDE\SPIRONOLACTONE
     Indication: ATRIAL FIBRILLATION
  7. TENORMIN [Concomitant]
     Active Substance: ATENOLOL
     Indication: ATRIAL FIBRILLATION
  8. FLECAINE [Concomitant]
     Active Substance: FLECAINIDE
     Indication: TACHYCARDIA
     Dosage: 150 MG, DAILY
     Route: 048
     Dates: start: 201001
  9. AROMASINE [Suspect]
     Active Substance: EXEMESTANE
     Indication: BREAST CANCER METASTATIC
     Dosage: UNK
     Dates: start: 201312, end: 201402
  10. ESBERIVEN /06844701/ [Concomitant]
     Indication: ILL-DEFINED DISORDER
     Dosage: 2 DF, DAILY
     Route: 048
     Dates: start: 200904
  11. VASTEN /00880402/ [Concomitant]
     Active Substance: PRAVASTATIN SODIUM
     Indication: HYPERCHOLESTEROLAEMIA
     Dosage: 20 MG, DAILY
     Route: 048
     Dates: start: 200904
  12. ALDACTAZINE [Concomitant]
     Active Substance: ALTHIAZIDE\SPIRONOLACTONE
     Indication: HYPERTENSION
     Dosage: 1 DF, DAILY
     Route: 048
     Dates: start: 200904

REACTIONS (2)
  - Diabetes mellitus [Unknown]
  - Malnutrition [Unknown]
